FAERS Safety Report 20668654 (Version 4)
Quarter: 2022Q4

REPORT INFORMATION
  Report Type: Report from Study
  Country: FR (occurrence: None)
  Receive Date: 20220404
  Receipt Date: 20221030
  Transmission Date: 20230112
  Serious: Yes (Hospitalization)
  Sender: FDA-Public Use
  Company Number: FR-ROCHE-3061281

PATIENT
  Age: 61 Year
  Sex: Female
  Weight: 57 kg

DRUGS (3)
  1. ATEZOLIZUMAB [Suspect]
     Active Substance: ATEZOLIZUMAB
     Indication: Bladder cancer
     Dosage: ON 18/JAN/2022, RECEIVED LAST DOSE OF 1200 MG ATEZOLIZUMAB PRIOR TO AE
     Route: 041
     Dates: start: 20211117
  2. BCG-MEDAC [Suspect]
     Active Substance: BACILLUS CALMETTE-GUERIN ANTIGEN, UNSPECIFIED SUBSTRAIN
     Indication: Bladder cancer
     Dosage: ON 22/DEC/2021, RECEIVED LAST DOSE OF 50 ML BCG PRIOR TO AE
     Route: 043
     Dates: start: 20211117
  3. DOLIPRANE [Concomitant]
     Active Substance: ACETAMINOPHEN
     Route: 048

REACTIONS (1)
  - Arthropathy [Recovering/Resolving]

NARRATIVE: CASE EVENT DATE: 20220215
